FAERS Safety Report 8215971-5 (Version None)
Quarter: 2012Q1

REPORT INFORMATION
  Report Type: 
  Country: None (occurrence: None)
  Receive Date: 20120316
  Receipt Date: 20120313
  Transmission Date: 20120608
  Serious: No
  Sender: FDA-Public Use
  Company Number: US-PFIZER INC-2012067501

PATIENT

DRUGS (4)
  1. LIPITOR [Suspect]
     Dosage: UNK
  2. WELCHOL [Suspect]
     Dosage: UNK
  3. PRAVACHOL [Suspect]
     Dosage: UNK
  4. CRESTOR [Suspect]
     Dosage: UNK

REACTIONS (1)
  - DRUG HYPERSENSITIVITY [None]
